FAERS Safety Report 8241327-5 (Version None)
Quarter: 2012Q1

REPORT INFORMATION
  Report Type: 
  Country: None (occurrence: None)
  Receive Date: 20120328
  Receipt Date: 20120320
  Transmission Date: 20120608
  Serious: Yes (Hospitalization)
  Sender: FDA-Public Use
  Company Number: SE-PFIZER INC-2008084318

PATIENT
  Age: 58 Year
  Sex: Female
  Weight: 83 kg

DRUGS (13)
  1. LIVIAL [Concomitant]
     Dates: start: 20011001
  2. ENALAPRIL MALEATE [Concomitant]
     Dosage: 2.5 MGX1
     Dates: start: 20090916, end: 20100213
  3. ENALAPRIL MALEATE [Concomitant]
     Indication: HYPERTENSION
     Dates: start: 20020315
  4. DESMOPRESSIN ACETATE [Concomitant]
     Indication: DIABETES INSIPIDUS
     Dates: start: 20070118
  5. SOMATROPIN [Suspect]
     Indication: HYPOPITUITARISM
     Dosage: 0.30 MG, 1X/DAY
     Dates: start: 19960611, end: 20080929
  6. SOTALOL HYDROCHLORIDE [Concomitant]
     Indication: HYPERTENSION
  7. LEVOTHYROXINE SODIUM [Concomitant]
     Indication: HYPOTHYROIDISM
     Dates: start: 20020219
  8. PRASTERONE [Concomitant]
     Indication: HYPOGONADISM
     Dates: start: 20021015
  9. ASPIRIN [Concomitant]
     Indication: ARTERIOSCLEROSIS
     Dates: start: 20030601
  10. SOTALOL HYDROCHLORIDE [Concomitant]
     Indication: TACHYCARDIA
     Dates: start: 19960401
  11. TRIOBE [Concomitant]
     Indication: VITAMIN B12 DEFICIENCY
     Dates: start: 20031205
  12. HYDROCORTONE [Concomitant]
     Indication: BLOOD CORTICOTROPHIN DECREASED
     Dosage: 20 MG, 1X/DAY
     Dates: start: 20070301
  13. LIPITOR [Concomitant]
     Indication: HYPERCHOLESTEROLAEMIA
     Dates: start: 20001110

REACTIONS (2)
  - CERVIX CARCINOMA STAGE II [None]
  - DISEASE PROGRESSION [None]
